FAERS Safety Report 8409568-1 (Version None)
Quarter: 2012Q2

REPORT INFORMATION
  Report Type: 
  Country: None (occurrence: None)
  Receive Date: 20120531
  Receipt Date: 20120531
  Transmission Date: 20120825
  Serious: Yes (Other)
  Sender: FDA-Public Use
  Company Number: None

PATIENT
  Sex: Female

DRUGS (1)
  1. PEGASYS [Suspect]
     Dosage: 180 MCG WEEKLY SUB-Q
     Route: 058

REACTIONS (2)
  - DEPRESSION [None]
  - SUICIDAL IDEATION [None]
